FAERS Safety Report 9513727 (Version 1)
Quarter: 2013Q1

REPORT INFORMATION
  Report Type: Spontaneous
  Country: US (occurrence: None)
  Receive Date: 20130305
  Receipt Date: 20130305
  Transmission Date: 20140127
  Serious: Yes (Other)
  Sender: FDA-Public Use
  Company Number: 163-21880-12102133

PATIENT
  Age: 62 Year
  Sex: Female
  Weight: 91.63 kg

DRUGS (9)
  1. REVLIMID [Suspect]
     Indication: MYELODYSPLASTIC SYNDROME
     Route: 048
     Dates: start: 20121011, end: 20121029
  2. VITAMIN B12 (CYANOCOBALAMIN) [Concomitant]
  3. HCTZ (HYDROCHLOROTHIAZIDE) [Concomitant]
  4. AMLODIPINE (AMLODIPINE) [Concomitant]
  5. FLUOXETINE (FLUOXETINE) [Concomitant]
  6. FERROUS SULFATE (FERROUS SULFATE) [Concomitant]
  7. VITAMIN C [Concomitant]
  8. AMOXICILLIN (AMOXICILLIN) [Concomitant]
  9. HYDRALAZINE (HYDRALAZINE) [Concomitant]

REACTIONS (6)
  - Eye swelling [None]
  - Swelling face [None]
  - Pruritus [None]
  - Ear swelling [None]
  - Ear pruritus [None]
  - Rash [None]
